FAERS Safety Report 9712231 (Version 1)
Quarter: 2013Q4

REPORT INFORMATION
  Report Type: Spontaneous
  Country: BR (occurrence: BR)
  Receive Date: 20131126
  Receipt Date: 20131126
  Transmission Date: 20140711
  Serious: Yes (Hospitalization, Other)
  Sender: FDA-Public Use
  Company Number: BR-BAYER-2013-141452

PATIENT
  Age: 43 Year
  Sex: Female
  Weight: 74 kg

DRUGS (4)
  1. QLAIRA [Suspect]
     Indication: DYSMENORRHOEA
     Dosage: 1 DF, QD
     Route: 048
     Dates: start: 2012
  2. QLAIRA [Suspect]
     Indication: HYPOMENORRHOEA
  3. BI-PROFENID [Concomitant]
     Indication: PROPHYLAXIS
     Dosage: 1 DF, BID
     Route: 048
     Dates: start: 20131115
  4. QUINOFLOX [Concomitant]
     Indication: PROPHYLAXIS
     Dosage: 1 DF, BID
     Route: 048
     Dates: start: 20131115

REACTIONS (13)
  - Metrorrhagia [Recovered/Resolved]
  - Renal colic [Recovered/Resolved]
  - Nephrolithiasis [Recovered/Resolved]
  - Calculus ureteric [Recovered/Resolved]
  - Ureteric obstruction [Recovered/Resolved]
  - Ovarian cyst [Recovered/Resolved]
  - Pelvic pain [Recovered/Resolved]
  - Syncope [Recovered/Resolved]
  - Post procedural haemorrhage [Not Recovered/Not Resolved]
  - Vaginal haemorrhage [Not Recovered/Not Resolved]
  - Hypertension [Recovered/Resolved]
  - Drug dose omission [None]
  - Ovarian cyst [Not Recovered/Not Resolved]
